FAERS Safety Report 12098422 (Version 2)
Quarter: 2016Q1

REPORT INFORMATION
  Report Type: Other
  Country: FR (occurrence: FR)
  Receive Date: 20160222
  Receipt Date: 20160309
  Transmission Date: 20160526
  Serious: Yes (Other)
  Sender: FDA-Public Use
  Company Number: FR-JUBILANT GENERICS LIMITED-1048181

PATIENT
  Age: 69 Year
  Sex: Male
  Weight: 66.36 kg

DRUGS (11)
  1. LORAZEPAM. [Concomitant]
     Active Substance: LORAZEPAM
  2. QUETIAPINE FUMARATE. [Suspect]
     Active Substance: QUETIAPINE FUMARATE
  3. VALPROMID [Suspect]
     Active Substance: VALPROMIDE
  4. ESCITALOPRAM [Concomitant]
     Active Substance: ESCITALOPRAM OXALATE
  5. TAMSULOSIN HYDROCHLORIDE. [Concomitant]
     Active Substance: TAMSULOSIN HYDROCHLORIDE
  6. THIAMINE/PYRIDOXINE [Concomitant]
  7. PROPRANOLOL [Concomitant]
     Active Substance: PROPRANOLOL\PROPRANOLOL HYDROCHLORIDE
  8. INSULIN ASPART [Concomitant]
     Active Substance: INSULIN ASPART
  9. PERINDOPIRL [Concomitant]
  10. ZOPICLONE [Concomitant]
     Active Substance: ZOPICLONE
  11. PROLONGED-RELEASE LITHIUM [Concomitant]

REACTIONS (2)
  - Drug interaction [Recovered/Resolved]
  - Hyperammonaemic encephalopathy [Recovered/Resolved]

NARRATIVE: CASE EVENT DATE: 20160208
